FAERS Safety Report 4282003-3 (Version None)
Quarter: 2004Q1

REPORT INFORMATION
  Report Type: 
  Country: None (occurrence: None)
  Receive Date: 20040128
  Receipt Date: 20040116
  Transmission Date: 20041129
  Serious: No
  Sender: FDA-Public Use
  Company Number: 204234

PATIENT
  Age: 52 Year
  Sex: Female

DRUGS (2)
  1. CATHFLO ACTIVASE [Suspect]
     Indication: CATHETER RELATED COMPLICATION
     Dosage: 2 MG, SINGLE, INTRAVENOUS
     Route: 042
     Dates: start: 20040114, end: 20040114
  2. ZOMETA [Concomitant]

REACTIONS (3)
  - ERYTHEMA [None]
  - FLUSHING [None]
  - NAUSEA [None]
